FAERS Safety Report 4822204-6 (Version None)
Quarter: 2005Q4

REPORT INFORMATION
  Report Type: 
  Country: None (occurrence: None)
  Receive Date: 20051103
  Receipt Date: 20051018
  Transmission Date: 20060501
  Serious: Yes (Other)
  Sender: FDA-Public Use
  Company Number: USA0509108376

PATIENT
  Age: 55 Year
  Sex: Female
  Weight: 100 kg

DRUGS (8)
  1. CYMBALTA [Suspect]
     Indication: DEPRESSION
     Dosage: 60 MG
     Dates: start: 20050628, end: 20050823
  2. CYMBALTA [Suspect]
     Indication: SCHIZOAFFECTIVE DISORDER
     Dosage: 60 MG
     Dates: start: 20050628, end: 20050823
  3. PAXIL (PAROXETINE HYDROCHORIDE0 [Concomitant]
  4. SYNTHROID [Concomitant]
  5. RESTORIL [Concomitant]
  6. ATIVAN [Concomitant]
  7. SEROQUEL (QUETIAINE FUMARATE) [Concomitant]
  8. TOPAMAX [Concomitant]

REACTIONS (4)
  - HEPATIC STEATOSIS [None]
  - HEPATITIS VIRAL [None]
  - HYPERSENSITIVITY [None]
  - WHITE BLOOD CELL COUNT DECREASED [None]
